FAERS Safety Report 9519405 (Version 1)
Quarter: 2013Q1

REPORT INFORMATION
  Report Type: Spontaneous
  Country: US (occurrence: None)
  Receive Date: 20130305
  Receipt Date: 20130305
  Transmission Date: 20140127
  Serious: Yes (Hospitalization)
  Sender: FDA-Public Use
  Company Number: 163-21880-12063226

PATIENT
  Age: 70 Year
  Sex: Male

DRUGS (11)
  1. REVLIMID (LENALIDOMIDE) (CAPSULES) [Suspect]
     Indication: PLASMA CELL MYELOMA
     Dosage: 5 MG, 1 IN 2 D, PO
     Route: 048
     Dates: start: 20120326, end: 20120404
  2. ACYCLOVIR (ACICLOVIR) (UNKNOWN) [Concomitant]
  3. AMLODIPINE (AMLODIPINE) (UNKNOWN) [Concomitant]
  4. CELEXA (CITALOPRAM HYDROBROMIDE) (UNKNOWN) [Concomitant]
  5. LEVAQUIN (LEVOFLOXACIN) (UNKNOWN) [Concomitant]
  6. MUCINEX (GUAIFENESIN) (UNKNOWN) [Concomitant]
  7. PREDNISONE (PREDNISONE) (UNKNOWN) [Concomitant]
  8. PROBIOTIC (BIFIDOBACTERIUM LACTIS) (UNKNOWN) [Concomitant]
  9. RAPAFLO (SILODOSIN) (UNKNOWN) [Concomitant]
  10. ROCEPHIN (CEFTRIAXONE SODIUM) (UNKNOWN) [Concomitant]
  11. DARBEPOETIN (DARBEPOETIN ALFA) (INJECTION) [Concomitant]

REACTIONS (5)
  - Pneumonia [None]
  - Nasal congestion [None]
  - Oropharyngeal pain [None]
  - Ear discomfort [None]
  - Red blood cell count decreased [None]
